FAERS Safety Report 22644090 (Version 1)
Quarter: 2023Q2

REPORT INFORMATION
  Report Type: Spontaneous
  Country: FR (occurrence: FR)
  Receive Date: 20230627
  Receipt Date: 20230627
  Transmission Date: 20230721
  Serious: Yes (Hospitalization, Other)
  Sender: FDA-Public Use
  Company Number: None

PATIENT
  Age: 44 Year
  Sex: Male
  Weight: 41 kg

DRUGS (4)
  1. HALDOL [Suspect]
     Active Substance: HALOPERIDOL
     Indication: Product used for unknown indication
     Dosage: INCONNU
     Route: 065
     Dates: end: 20230210
  2. COCAINE [Suspect]
     Active Substance: COCAINE
     Indication: Product used for unknown indication
     Dosage: INCONNU
     Route: 065
     Dates: end: 20230210
  3. SUBUTEX [Suspect]
     Active Substance: BUPRENORPHINE HYDROCHLORIDE
     Indication: Product substitution
     Dosage: INCONNU
     Route: 045
     Dates: end: 20230210
  4. DIAZEPAM [Suspect]
     Active Substance: DIAZEPAM
     Indication: Product used for unknown indication
     Route: 065
     Dates: end: 20230210

REACTIONS (3)
  - Amnesia [Recovered/Resolved]
  - Depressed level of consciousness [Recovered/Resolved]
  - Drug abuse [Recovering/Resolving]

NARRATIVE: CASE EVENT DATE: 20230210
